FAERS Safety Report 24771730 (Version 1)
Quarter: 2024Q4

REPORT INFORMATION
  Report Type: Spontaneous
  Country: US (occurrence: None)
  Receive Date: 20241224
  Receipt Date: 20241224
  Transmission Date: 20250115
  Serious: Yes (Hospitalization)
  Sender: Public
  Company Number: None

PATIENT
  Sex: Female

DRUGS (4)
  1. MAYZENT [Suspect]
     Active Substance: SIPONIMOD
     Indication: Multiple sclerosis
     Route: 048
     Dates: start: 20240719
  2. COVID-19 [Concomitant]
  3. CYCLOBENZAPRINE [Concomitant]
     Active Substance: CYCLOBENZAPRINE
  4. ERGOTAMINE TARTRATE AND CAFFEINE [Suspect]
     Active Substance: CAFFEINE\ERGOTAMINE TARTRATE

REACTIONS (2)
  - Fall [None]
  - Intentional dose omission [None]
